FAERS Safety Report 9060559 (Version 3)
Quarter: 2013Q2

REPORT INFORMATION
  Report Type: Report from Study
  Country: US (occurrence: US)
  Receive Date: 20130212
  Receipt Date: 20130628
  Transmission Date: 20140414
  Serious: Yes (Hospitalization)
  Sender: FDA-Public Use
  Company Number: US-US-EMD SERONO, INC.-7192738

PATIENT
  Age: 54 Year
  Sex: Male

DRUGS (3)
  1. REBIF [Suspect]
     Indication: MULTIPLE SCLEROSIS
     Route: 058
     Dates: start: 20121231
  2. IBUPROFEN [Concomitant]
     Indication: PREMEDICATION
  3. TYLENOL                            /00020001/ [Concomitant]
     Indication: PREMEDICATION

REACTIONS (7)
  - Urinary tract infection [Not Recovered/Not Resolved]
  - Multiple sclerosis relapse [Unknown]
  - Anxiety [Not Recovered/Not Resolved]
  - Asthenia [Not Recovered/Not Resolved]
  - Asthenia [Not Recovered/Not Resolved]
  - Fatigue [Not Recovered/Not Resolved]
  - Hyperhidrosis [Not Recovered/Not Resolved]
